FAERS Safety Report 19141619 (Version 2)
Quarter: 2021Q2

REPORT INFORMATION
  Report Type: Report from Study
  Country: IT (occurrence: IT)
  Receive Date: 20210415
  Receipt Date: 20210517
  Transmission Date: 20210717
  Serious: Yes (Hospitalization, Other)
  Sender: FDA-Public Use
  Company Number: IT-CELGENEUS-ITA-20210401629

PATIENT
  Age: 75 Year
  Sex: Male

DRUGS (3)
  1. LUSPATERCEPT. [Suspect]
     Active Substance: LUSPATERCEPT
     Indication: REFRACTORY ANAEMIA WITH RINGED SIDEROBLASTS
     Dosage: 1.33 MILLIGRAM
     Route: 058
     Dates: start: 20210115, end: 20210506
  2. FUROSEMIDE. [Concomitant]
     Active Substance: FUROSEMIDE
     Indication: ASCITES
     Route: 048
     Dates: start: 20210402
  3. CANRENONE [Concomitant]
     Active Substance: CANRENONE
     Indication: ASCITES
     Route: 048
     Dates: start: 20210402

REACTIONS (2)
  - General physical health deterioration [Not Recovered/Not Resolved]
  - Ascites [Recovered/Resolved]

NARRATIVE: CASE EVENT DATE: 20210402
